FAERS Safety Report 25429197 (Version 1)
Quarter: 2025Q2

REPORT INFORMATION
  Report Type: Spontaneous
  Country: US (occurrence: US)
  Receive Date: 20250612
  Receipt Date: 20250612
  Transmission Date: 20250717
  Serious: No
  Sender: Unknown Manufacturer
  Company Number: US-KINIKSA PHARMACEUTICALS LTD.-2025KPU001560

PATIENT
  Sex: Female

DRUGS (1)
  1. ARCALYST [Suspect]
     Active Substance: RILONACEPT
     Indication: Pericardial effusion
     Dosage: UNK, QW
     Route: 058
     Dates: start: 202406

REACTIONS (7)
  - Rheumatoid arthritis [Unknown]
  - Pericardial effusion [Unknown]
  - Chest discomfort [Unknown]
  - Off label use [Unknown]
  - Influenza [Unknown]
  - Inappropriate schedule of product administration [Unknown]
  - COVID-19 [Unknown]
